FAERS Safety Report 12737310 (Version 1)
Quarter: 2016Q3

REPORT INFORMATION
  Report Type: Spontaneous
  Country: FR (occurrence: FR)
  Receive Date: 20160913
  Receipt Date: 20160913
  Transmission Date: 20161109
  Serious: Yes (Hospitalization, Other)
  Sender: FDA-Public Use
  Company Number: FR-MYLANLABS-2016M1038400

PATIENT

DRUGS (1)
  1. FONDAPARINUX [Suspect]
     Active Substance: FONDAPARINUX
     Indication: THROMBOPHLEBITIS
     Dosage: 7.5 MG, QD
     Route: 058
     Dates: start: 201607

REACTIONS (2)
  - Haematoma [Unknown]
  - Compartment syndrome [Unknown]

NARRATIVE: CASE EVENT DATE: 201607
